FAERS Safety Report 12103595 (Version 1)
Quarter: 2016Q1

REPORT INFORMATION
  Report Type: Other
  Country: US (occurrence: US)
  Receive Date: 20160222
  Receipt Date: 20160222
  Transmission Date: 20160526
  Serious: No
  Sender: FDA-Public Use
  Company Number: US-ACORDA-ACO_113317_2015

PATIENT
  Sex: Female

DRUGS (3)
  1. AMPYRA [Suspect]
     Active Substance: DALFAMPRIDINE
     Dosage: UNK, BID
     Route: 065
     Dates: start: 201505
  2. AMPYRA [Suspect]
     Active Substance: DALFAMPRIDINE
     Dosage: UNK
     Dates: start: 201507, end: 201509
  3. AMPYRA [Suspect]
     Active Substance: DALFAMPRIDINE
     Indication: MULTIPLE SCLEROSIS
     Dosage: 10 MG, BID
     Route: 065

REACTIONS (3)
  - Fall [Unknown]
  - Therapeutic response unexpected [Not Recovered/Not Resolved]
  - Fall [Recovering/Resolving]
